FAERS Safety Report 7576229 (Version 5)
Quarter: 2013Q3

REPORT INFORMATION
  Report Type: Spontaneous
  Country: JP (occurrence: JP)
  Receive Date: 20100908
  Receipt Date: 20130920
  Transmission Date: 20140515
  Serious: Yes (Death, Life-Threatening)
  Sender: FDA-Public Use
  Company Number: JP-ROCHE-712564

PATIENT
  Age: 52 Year
  Sex: Female
  Weight: 33 kg

DRUGS (5)
  1. AVASTIN [Suspect]
     Indication: RECTAL CANCER RECURRENT
     Route: 041
     Dates: start: 20100222, end: 20100318
  2. XELODA [Suspect]
     Indication: RECTAL CANCER RECURRENT
     Route: 048
     Dates: start: 20100222, end: 20100401
  3. ELPLAT [Concomitant]
     Route: 041
     Dates: start: 20100222, end: 20100318
  4. LOXONIN [Concomitant]
     Route: 048
     Dates: start: 20100301, end: 20100506
  5. MUCOSTA [Concomitant]
     Route: 048
     Dates: start: 20100301, end: 20100506

REACTIONS (5)
  - Septic shock [Fatal]
  - Disseminated intravascular coagulation [Fatal]
  - Multi-organ failure [Fatal]
  - Necrotising fasciitis [Not Recovered/Not Resolved]
  - Anal fistula [Not Recovered/Not Resolved]
